FAERS Safety Report 25071063 (Version 1)
Quarter: 2025Q1

REPORT INFORMATION
  Report Type: Spontaneous
  Country: AU (occurrence: AU)
  Receive Date: 20250312
  Receipt Date: 20250312
  Transmission Date: 20250409
  Serious: Yes (Other)
  Sender: BRISTOL-MYERS SQUIBB COMPANY
  Company Number: AU-BRISTOL-MYERS SQUIBB COMPANY-2025-034527

PATIENT
  Sex: Male
  Weight: 90 kg

DRUGS (3)
  1. MAVACAMTEN [Suspect]
     Active Substance: MAVACAMTEN
     Indication: Hypertrophic cardiomyopathy
  2. MAVACAMTEN [Suspect]
     Active Substance: MAVACAMTEN
  3. MAVACAMTEN [Suspect]
     Active Substance: MAVACAMTEN

REACTIONS (10)
  - Systolic dysfunction [Unknown]
  - Left ventricular dysfunction [Unknown]
  - Global longitudinal strain abnormal [Unknown]
  - Left atrial dilatation [Unknown]
  - Sinus bradycardia [Unknown]
  - Mitral valve incompetence [Unknown]
  - Tricuspid valve incompetence [Unknown]
  - Aortic valve incompetence [Unknown]
  - Circulatory collapse [Unknown]
  - Ejection fraction decreased [Unknown]
